FAERS Safety Report 9196839 (Version 1)
Quarter: 2013Q1

REPORT INFORMATION
  Report Type: Spontaneous
  Country: US (occurrence: US)
  Receive Date: 20130328
  Receipt Date: 20130328
  Transmission Date: 20140127
  Serious: Yes (Other)
  Sender: FDA-Public Use
  Company Number: PHEH2013US004544

PATIENT
  Age: 66 Year
  Sex: Male

DRUGS (15)
  1. TASIGNA [Suspect]
     Indication: CHRONIC MYELOID LEUKAEMIA
     Dosage: 300 MG, Q12H
     Route: 048
     Dates: start: 20130208, end: 20130219
  2. NORCO [Concomitant]
     Dosage: 325 MG + 10 MG
     Route: 048
  3. POTASSIUM CHLORIDE [Concomitant]
     Dosage: 10 MG, UNK
     Route: 048
  4. FUROSEMIDE [Concomitant]
     Dosage: 40 MG, QD
     Route: 048
  5. BENAZEPRIL [Concomitant]
     Dosage: 40 MG, QD
     Route: 048
  6. ATENOLOL [Concomitant]
     Dosage: 50 MG, UNK
     Route: 048
  7. VYTORIN [Concomitant]
     Dosage: 10MG- 40 MG
     Route: 048
  8. DOXAZOSIN [Concomitant]
     Dosage: 4 MG, QD
     Route: 048
  9. GABAPENTIN [Concomitant]
     Dosage: 300 MG, QD
     Route: 048
  10. IBUPROFEN [Concomitant]
     Dosage: 800 MG, QD
     Route: 048
  11. METFORMIN [Concomitant]
     Dosage: 500 MG, QD
     Route: 048
  12. AMARYL [Concomitant]
     Dosage: 2 MG, QD
     Route: 048
  13. PERCOCET [Concomitant]
     Dosage: 7.5/ 325
     Route: 048
  14. CHOLECALCIFEROL [Concomitant]
     Dosage: 5000 IU, UNK
     Route: 048
  15. ASPIRIN [Concomitant]
     Dosage: 325 MG, QD
     Route: 048

REACTIONS (5)
  - Pancreatitis [Recovered/Resolved]
  - Abdominal pain upper [Recovered/Resolved]
  - Nausea [Recovered/Resolved]
  - Dyspnoea [Recovered/Resolved]
  - Chest pain [Recovered/Resolved]
